FAERS Safety Report 8056695-7 (Version None)
Quarter: 2012Q1

REPORT INFORMATION
  Report Type: 
  Country: None (occurrence: None)
  Receive Date: 20120119
  Receipt Date: 20110517
  Transmission Date: 20120608
  Serious: No
  Sender: FDA-Public Use
  Company Number: US-SANOFI-AVENTIS-2011SA033761

PATIENT
  Age: 67 Year
  Sex: Male
  Weight: 84 kg

DRUGS (9)
  1. COLACE [Concomitant]
  2. ALL OTHER THERAPEUTIC PRODUCTS [Concomitant]
  3. PEPCID [Concomitant]
  4. SYNTHROID [Concomitant]
  5. ATORVASTATIN CALCIUM [Concomitant]
  6. LORTAB [Concomitant]
  7. LASIX [Suspect]
     Route: 048
     Dates: start: 20110514
  8. POTASSIUM CHLORIDE [Concomitant]
  9. LOPRESSOR [Concomitant]

REACTIONS (3)
  - WEIGHT INCREASED [None]
  - SWELLING [None]
  - MICTURITION FREQUENCY DECREASED [None]
